FAERS Safety Report 5454438-4 (Version None)
Quarter: 2007Q3

REPORT INFORMATION
  Report Type: 
  Country: None (occurrence: None)
  Receive Date: 20070917
  Receipt Date: 20060919
  Transmission Date: 20080115
  Serious: No
  Sender: FDA-Public Use
  Company Number: US-ASTRAZENECA-2006UW18330

PATIENT

DRUGS (3)
  1. SEROQUEL [Suspect]
     Route: 048
  2. NEURONTIN [Interacting]
  3. ANTIDEPRESSANTS [Concomitant]

REACTIONS (1)
  - HALLUCINATION [None]
